FAERS Safety Report 16261900 (Version 1)
Quarter: 2019Q2

REPORT INFORMATION
  Report Type: Spontaneous
  Country: SI (occurrence: SI)
  Receive Date: 20190501
  Receipt Date: 20190501
  Transmission Date: 20190711
  Serious: Yes (Other)
  Sender: FDA-Public Use
  Company Number: SI-JNJFOC-20190445121

PATIENT
  Sex: Female

DRUGS (8)
  1. XARELTO [Suspect]
     Active Substance: RIVAROXABAN
     Indication: ATRIAL FIBRILLATION
     Route: 048
     Dates: start: 2018
  2. CONCOR [Concomitant]
     Active Substance: BISOPROLOL FUMARATE
     Route: 065
  3. EDEMID [Concomitant]
     Active Substance: FUROSEMIDE
     Route: 065
  4. ASENTRA [Concomitant]
     Active Substance: SERTRALINE HYDROCHLORIDE
     Route: 065
  5. MIRZATEN [Concomitant]
     Active Substance: MIRTAZAPINE
     Route: 065
  6. EUTHYROX [Concomitant]
     Active Substance: LEVOTHYROXINE SODIUM
     Route: 065
  7. ENTRESTO [Concomitant]
     Active Substance: SACUBITRIL\VALSARTAN
     Route: 065
  8. LANITOP [Concomitant]
     Active Substance: METILDIGOXIN
     Route: 065

REACTIONS (1)
  - Renal impairment [Unknown]
